FAERS Safety Report 21812844 (Version 1)
Quarter: 2023Q1

REPORT INFORMATION
  Report Type: Spontaneous
  Country: US (occurrence: US)
  Receive Date: 20230103
  Receipt Date: 20230103
  Transmission Date: 20230418
  Serious: Yes (Other)
  Sender: FDA-Public Use
  Company Number: US-BAYER-2022A176070

PATIENT
  Age: 12 Year
  Sex: Female

DRUGS (1)
  1. VITRAKVI [Suspect]
     Active Substance: LAROTRECTINIB
     Indication: Inflammatory myofibroblastic tumour
     Dosage: UNK
     Dates: start: 202112

REACTIONS (1)
  - Inflammatory myofibroblastic tumour [None]
